FAERS Safety Report 22164048 (Version 3)
Quarter: 2023Q2

REPORT INFORMATION
  Report Type: Report from Study
  Country: CN (occurrence: None)
  Receive Date: 20230402
  Receipt Date: 20230427
  Transmission Date: 20230721
  Serious: Yes (Hospitalization)
  Sender: FDA-Public Use
  Company Number: CN-ROCHE-3094044

PATIENT
  Age: 65 Year
  Sex: Female
  Weight: 45 kg

DRUGS (13)
  1. BEVACIZUMAB [Suspect]
     Active Substance: BEVACIZUMAB
     Indication: Non-small cell lung cancer metastatic
     Dosage: STRENGTH: 100 MG (4 ML) / BOTTLE, PATIENT RECEIVED SUBSEQUENT DOSES 675 MG (ONLY ONCE) OF BLINDED BE
     Route: 041
     Dates: start: 20220218, end: 20220218
  2. BEVACIZUMAB [Suspect]
     Active Substance: BEVACIZUMAB
     Route: 041
     Dates: start: 20220309, end: 20220309
  3. BEVACIZUMAB [Suspect]
     Active Substance: BEVACIZUMAB
     Route: 041
     Dates: start: 20220331, end: 20220331
  4. BEVACIZUMAB [Suspect]
     Active Substance: BEVACIZUMAB
     Route: 041
     Dates: start: 20220419, end: 20220419
  5. PACLITAXEL [Suspect]
     Active Substance: PACLITAXEL
     Indication: Non-small cell lung cancer metastatic
     Dosage: STRENGTH: 5 ML: 30 MG.  PATIENT RECEIVED SUBSEQUENT DOSES OF 246 MG (ONLY ONCE) PACLITAXEL ON 09/MAR
     Route: 041
     Dates: start: 20220218, end: 20220218
  6. PACLITAXEL [Suspect]
     Active Substance: PACLITAXEL
     Route: 041
     Dates: start: 20220419, end: 20220419
  7. PACLITAXEL [Suspect]
     Active Substance: PACLITAXEL
     Route: 041
     Dates: start: 20220309, end: 20220309
  8. PACLITAXEL [Suspect]
     Active Substance: PACLITAXEL
     Route: 041
     Dates: start: 20220331, end: 20220331
  9. CARBOPLATIN [Suspect]
     Active Substance: CARBOPLATIN
     Indication: Non-small cell lung cancer metastatic
     Dosage: STRENGTH 10 ML:100 MG. PATIENT RECEIVED SUBSEQUENT DOSES OF CARBOPLATIN 600 MG (ONLY ONCE) ON 09/MAR
     Route: 041
     Dates: start: 20220218, end: 20220218
  10. CARBOPLATIN [Suspect]
     Active Substance: CARBOPLATIN
     Route: 041
     Dates: start: 20220309, end: 20220309
  11. CARBOPLATIN [Suspect]
     Active Substance: CARBOPLATIN
     Route: 041
     Dates: start: 20220331, end: 20220331
  12. CARBOPLATIN [Suspect]
     Active Substance: CARBOPLATIN
     Route: 041
     Dates: start: 20220419, end: 20220419
  13. DICLOFENAC POTASSIUM [Concomitant]
     Active Substance: DICLOFENAC POTASSIUM
     Indication: Pain
     Route: 054
     Dates: start: 20220421, end: 20220427

REACTIONS (3)
  - Febrile neutropenia [Recovered/Resolved]
  - Platelet count decreased [Recovered/Resolved]
  - Anaemia [Recovered/Resolved]

NARRATIVE: CASE EVENT DATE: 20220428
